FAERS Safety Report 18848713 (Version 1)
Quarter: 2021Q1

REPORT INFORMATION
  Report Type: Spontaneous
  Country: FR (occurrence: FR)
  Receive Date: 20210204
  Receipt Date: 20210204
  Transmission Date: 20210419
  Serious: Yes (Hospitalization)
  Sender: FDA-Public Use
  Company Number: FR-009507513-2101FRA013536

PATIENT
  Age: 55 Year
  Sex: Male
  Weight: 84 kg

DRUGS (1)
  1. TEMODAL [Suspect]
     Active Substance: TEMOZOLOMIDE
     Indication: GLIOBLASTOMA
     Dosage: DAY 1 TO DAY 5
     Route: 041
     Dates: start: 20200717, end: 20200721

REACTIONS (2)
  - Condition aggravated [Recovered/Resolved with Sequelae]
  - Wernicke^s encephalopathy [Recovered/Resolved with Sequelae]

NARRATIVE: CASE EVENT DATE: 20200725
